FAERS Safety Report 23422837 (Version 1)
Quarter: 2024Q1

REPORT INFORMATION
  Report Type: Spontaneous
  Country: CN (occurrence: CN)
  Receive Date: 20240119
  Receipt Date: 20240119
  Transmission Date: 20240410
  Serious: Yes (Other)
  Sender: FDA-Public Use
  Company Number: CN-ABBVIE-5594584

PATIENT
  Age: 60 Year
  Sex: Female
  Weight: 88 kg

DRUGS (1)
  1. PRED FORTE [Suspect]
     Active Substance: PREDNISOLONE ACETATE
     Indication: Postoperative care
     Dosage: 4 DROPS
     Route: 065
     Dates: start: 20231014, end: 20231016

REACTIONS (1)
  - Injury corneal [Recovered/Resolved]

NARRATIVE: CASE EVENT DATE: 20231016
